FAERS Safety Report 7199466-6 (Version None)
Quarter: 2010Q4

REPORT INFORMATION
  Report Type: 
  Country: None (occurrence: None)
  Receive Date: 20101228
  Receipt Date: 20101214
  Transmission Date: 20110411
  Serious: Yes (Other)
  Sender: FDA-Public Use
  Company Number: PHHY2010US81580

PATIENT
  Sex: Female
  Weight: 175 kg

DRUGS (1)
  1. FEMARA [Suspect]
     Dosage: 2.5 MG, QD
     Route: 048
     Dates: start: 20070420

REACTIONS (1)
  - RETINAL OPERATION [None]
